FAERS Safety Report 5317596-8 (Version None)
Quarter: 2007Q2

REPORT INFORMATION
  Report Type: 
  Country: None (occurrence: None)
  Receive Date: 20070507
  Receipt Date: 20070425
  Transmission Date: 20071010
  Serious: Yes (Other)
  Sender: FDA-Public Use
  Company Number: PHBS2007JP07285

PATIENT

DRUGS (1)
  1. DIOVAN [Suspect]
     Route: 048
     Dates: start: 20050101

REACTIONS (4)
  - DYSPHAGIA [None]
  - LIP SWELLING [None]
  - PAIN [None]
  - SWOLLEN TONGUE [None]
